FAERS Safety Report 21274445 (Version 1)
Quarter: 2022Q3

REPORT INFORMATION
  Report Type: Spontaneous
  Country: TW (occurrence: TW)
  Receive Date: 20220831
  Receipt Date: 20220831
  Transmission Date: 20221027
  Serious: Yes (Other)
  Sender: FDA-Public Use
  Company Number: TW-PFIZER INC-202201083956

PATIENT
  Age: 54 Year
  Sex: Female

DRUGS (6)
  1. FLUCONAZOLE [Suspect]
     Active Substance: FLUCONAZOLE
     Indication: Pneumonia bacterial
     Dosage: 200 MG, DAILY
     Route: 042
  2. FLUCONAZOLE [Suspect]
     Active Substance: FLUCONAZOLE
     Indication: Empyema
  3. CLAVULANIC ACID/TICARCILLIN [Concomitant]
     Indication: Pneumonia bacterial
     Dosage: 3.1 G, 4X/DAY (EVERY 6 HOURS)
     Route: 042
  4. CLAVULANIC ACID/TICARCILLIN [Concomitant]
     Indication: Empyema
  5. AMIKACIN [Concomitant]
     Active Substance: AMIKACIN
     Indication: Pneumonia bacterial
     Dosage: 200 MG, 2X/DAY
     Route: 042
  6. AMIKACIN [Concomitant]
     Active Substance: AMIKACIN
     Indication: Empyema

REACTIONS (2)
  - Fungal infection [Recovering/Resolving]
  - Off label use [Unknown]
